FAERS Safety Report 10963441 (Version 1)
Quarter: 2015Q1

REPORT INFORMATION
  Report Type: Spontaneous
  Country: US (occurrence: None)
  Receive Date: 20150327
  Receipt Date: 20150327
  Transmission Date: 20150721
  Serious: Yes (Life-Threatening, Other)
  Sender: FDA-Public Use
  Company Number: None

PATIENT
  Age: 57 Year
  Sex: Male
  Weight: 182.8 kg

DRUGS (1)
  1. FENTANYL. [Suspect]
     Active Substance: FENTANYL
     Indication: PAIN
     Dosage: Q72H
     Route: 061
     Dates: start: 20150115, end: 20150120

REACTIONS (2)
  - Incorrect drug administration duration [None]
  - Sedation [None]

NARRATIVE: CASE EVENT DATE: 20150120
